FAERS Safety Report 8073226-6 (Version None)
Quarter: 2012Q1

REPORT INFORMATION
  Report Type: 
  Country: None (occurrence: None)
  Receive Date: 20120126
  Receipt Date: 20120112
  Transmission Date: 20120608
  Serious: Yes (Other)
  Sender: FDA-Public Use
  Company Number: PHHY2005BR03646

PATIENT
  Sex: Male

DRUGS (1)
  1. RITALIN LA [Suspect]
     Dosage: 20 MG, UNK

REACTIONS (4)
  - AGITATION [None]
  - GAIT DISTURBANCE [None]
  - IMPATIENCE [None]
  - PSYCHOMOTOR HYPERACTIVITY [None]
